FAERS Safety Report 21732761 (Version 1)
Quarter: 2022Q4

REPORT INFORMATION
  Report Type: Report from Study
  Country: CA (occurrence: CA)
  Receive Date: 20221215
  Receipt Date: 20221215
  Transmission Date: 20230113
  Serious: Yes (Other)
  Sender: FDA-Public Use
  Company Number: CA-ABBVIE-4236253

PATIENT
  Sex: Female

DRUGS (2)
  1. HUMIRA [Suspect]
     Active Substance: ADALIMUMAB
     Indication: Crohn^s disease
     Dosage: STRENGTH: 40 MILLIGRAM
     Route: 058
     Dates: start: 2022
  2. HUMIRA [Suspect]
     Active Substance: ADALIMUMAB
     Dosage: STRENGTH: 40 MILLIGRAM
     Route: 058
     Dates: start: 2009, end: 2022

REACTIONS (17)
  - Obstruction [Unknown]
  - Abdominal pain lower [Unknown]
  - Alopecia [Unknown]
  - Exercise test abnormal [Unknown]
  - Vomiting [Unknown]
  - Choking [Unknown]
  - Dysphagia [Unknown]
  - Gastrooesophageal reflux disease [Unknown]
  - Abdominal pain [Unknown]
  - Rosacea [Unknown]
  - Abnormal faeces [Unknown]
  - Blood chromogranin A increased [Unknown]
  - Drug level abnormal [Unknown]
  - 5-hydroxyindolacetic acid in urine decreased [Unknown]
  - Barium swallow abnormal [Unknown]
  - Musculoskeletal disorder [Unknown]
  - Flushing [Unknown]

NARRATIVE: CASE EVENT DATE: 20220101
